FAERS Safety Report 8884426 (Version 2)
Quarter: 2012Q4

REPORT INFORMATION
  Report Type: 
  Country: US (occurrence: US)
  Receive Date: 20121104
  Receipt Date: 20121108
  Transmission Date: 20130627
  Serious: No
  Sender: FDA-Public Use
  Company Number: US-ASTRAZENECA-2012SE81298

PATIENT
  Age: 45 Year
  Sex: Female

DRUGS (2)
  1. SEROQUEL XR [Suspect]
     Route: 048
  2. SEROQUEL XR [Suspect]
     Route: 048

REACTIONS (7)
  - Hyperhidrosis [Unknown]
  - Aggression [Unknown]
  - Dysphemia [Unknown]
  - Poor quality sleep [Unknown]
  - Abnormal dreams [Unknown]
  - Drug dose omission [Unknown]
  - Off label use [Unknown]
